FAERS Safety Report 16871261 (Version 1)
Quarter: 2019Q4

REPORT INFORMATION
  Report Type: Spontaneous
  Country: US (occurrence: US)
  Receive Date: 20191001
  Receipt Date: 20191001
  Transmission Date: 20200122
  Serious: Yes (Hospitalization)
  Sender: FDA-Public Use
  Company Number: US-TEVA-2019-US-1115603

PATIENT
  Age: 42 Year
  Sex: Female

DRUGS (4)
  1. PROCHLORPERAZINE. [Suspect]
     Active Substance: PROCHLORPERAZINE
     Indication: ANTIEMETIC SUPPORTIVE CARE
     Route: 065
  2. PROMETHAZINE [Suspect]
     Active Substance: PROMETHAZINE HYDROCHLORIDE
     Indication: ANTIEMETIC SUPPORTIVE CARE
     Route: 065
  3. OLAPARIB. [Suspect]
     Active Substance: OLAPARIB
     Indication: OVARIAN CANCER
     Dosage: RECEIVED IN CYCLES AND CONTINUED 24 MONTHS OF TREATMENT WITH NO INTERRUPTION
     Route: 065
  4. PYRIDOXINE [Suspect]
     Active Substance: PYRIDOXINE
     Indication: ANTIEMETIC SUPPORTIVE CARE
     Route: 065

REACTIONS (5)
  - Nausea [Recovered/Resolved]
  - Constipation [Recovered/Resolved]
  - Dyskinesia [Unknown]
  - Off label use [Unknown]
  - Vomiting [Recovered/Resolved]
